FAERS Safety Report 19815623 (Version 1)
Quarter: 2021Q3

REPORT INFORMATION
  Report Type: Spontaneous
  Country: US (occurrence: US)
  Receive Date: 20210910
  Receipt Date: 20210910
  Transmission Date: 20211014
  Serious: Yes (Other)
  Sender: FDA-Public Use
  Company Number: NVSC2021US199031

PATIENT
  Sex: Male

DRUGS (1)
  1. ALPRAZOLAM. [Suspect]
     Active Substance: ALPRAZOLAM
     Indication: ANXIETY
     Dosage: 0.5 MG, QN (EVERY NIGHT BEFORE BED)
     Route: 065

REACTIONS (3)
  - Coeliac disease [Unknown]
  - Hypokinesia [Unknown]
  - Feeling abnormal [Unknown]
